FAERS Safety Report 13833443 (Version 1)
Quarter: 2017Q3

REPORT INFORMATION
  Report Type: Spontaneous
  Country: US (occurrence: US)
  Receive Date: 20170804
  Receipt Date: 20170804
  Transmission Date: 20171127
  Serious: No
  Sender: FDA-Public Use
  Company Number: US-PFIZER INC-2017334727

PATIENT
  Age: 60 Year
  Sex: Female

DRUGS (2)
  1. OTREXUP [Suspect]
     Active Substance: METHOTREXATE
     Dosage: UNK
  2. MORPHINE SULFATE. [Suspect]
     Active Substance: MORPHINE SULFATE
     Indication: RHEUMATOID ARTHRITIS
     Dosage: UNK

REACTIONS (1)
  - Drug hypersensitivity [Unknown]
